FAERS Safety Report 22784275 (Version 6)
Quarter: 2024Q2

REPORT INFORMATION
  Report Type: Spontaneous
  Country: CA (occurrence: CA)
  Receive Date: 20230803
  Receipt Date: 20240530
  Transmission Date: 20240716
  Serious: Yes (Hospitalization, Other)
  Sender: FDA-Public Use
  Company Number: CA-PFIZER INC-202300249260

PATIENT
  Age: 58 Year
  Sex: Male
  Weight: 81 kg

DRUGS (5)
  1. RUXIENCE [Suspect]
     Active Substance: RITUXIMAB-PVVR
     Indication: Granulomatosis with polyangiitis
     Dosage: 1 DF, PROVIDED IN HOSPITAL, DOSAGE NOT AVAILABLE
     Route: 042
     Dates: start: 20230425, end: 20230425
  2. RUXIENCE [Suspect]
     Active Substance: RITUXIMAB-PVVR
     Dosage: 1000 MG AFTER 13 WEEKS AND 3 DAYS (FOR ONE DOSE)
     Route: 042
     Dates: start: 20230728, end: 20230728
  3. RUXIENCE [Suspect]
     Active Substance: RITUXIMAB-PVVR
     Dosage: 1000 MG, SINGLE (AFTER 17 WEEKS)
     Route: 042
     Dates: start: 20231127, end: 20231127
  4. RUXIENCE [Suspect]
     Active Substance: RITUXIMAB-PVVR
     Dosage: 500 MG, EVERY 6 MONTH
     Route: 042
     Dates: start: 20240527
  5. BENADRYL [Concomitant]
     Active Substance: DIPHENHYDRAMINE HYDROCHLORIDE
     Indication: Premedication
     Dosage: UNK
     Dates: start: 20230728, end: 20230728

REACTIONS (15)
  - Blood potassium decreased [Unknown]
  - Sinusitis [Unknown]
  - Dyspnoea [Recovering/Resolving]
  - Dysphagia [Recovering/Resolving]
  - Bronchostenosis [Recovering/Resolving]
  - Restless legs syndrome [Recovered/Resolved]
  - Muscle twitching [Recovered/Resolved]
  - Infection [Unknown]
  - Pruritus [Recovered/Resolved]
  - White blood cell count increased [Unknown]
  - Infection [Unknown]
  - Off label use [Unknown]
  - Off label use [Unknown]
  - Intentional product use issue [Unknown]
  - Inappropriate schedule of product administration [Unknown]

NARRATIVE: CASE EVENT DATE: 20230101
